FAERS Safety Report 10110439 (Version 2)
Quarter: 2014Q3

REPORT INFORMATION
  Report Type: Spontaneous
  Country: US (occurrence: None)
  Receive Date: 20140421
  Receipt Date: 20140722
  Transmission Date: 20150326
  Serious: No
  Sender: FDA-Public Use
  Company Number: AEGR000331

PATIENT
  Age: 35 Year
  Sex: Male
  Weight: 75.7 kg

DRUGS (1)
  1. JUXTAPID [Suspect]
     Active Substance: LOMITAPIDE MESYLATE
     Indication: TYPE IIA HYPERLIPIDAEMIA
     Route: 048
     Dates: start: 20131101, end: 201402

REACTIONS (4)
  - Nausea [None]
  - Abdominal distension [None]
  - Influenza like illness [None]
  - Diarrhoea [None]

NARRATIVE: CASE EVENT DATE: 201402
